FAERS Safety Report 10659464 (Version 1)
Quarter: 2014Q4

REPORT INFORMATION
  Report Type: Spontaneous
  Country: CO (occurrence: CO)
  Receive Date: 20141217
  Receipt Date: 20141217
  Transmission Date: 20150529
  Serious: Yes (Other)
  Sender: FDA-Public Use
  Company Number: PHHY2014CO161376

PATIENT
  Age: 11 Year
  Sex: Female

DRUGS (1)
  1. LEUPROLIDE [Suspect]
     Active Substance: LEUPROLIDE
     Indication: PRODUCT USED FOR UNKNOWN INDICATION
     Dosage: 3.75 ML, UNK
     Route: 065

REACTIONS (4)
  - Tooth disorder [Unknown]
  - Growth retardation [Unknown]
  - General physical health deterioration [Unknown]
  - Hypothyroidism [Unknown]
